FAERS Safety Report 4830605-5 (Version None)
Quarter: 2005Q4

REPORT INFORMATION
  Report Type: 
  Country: None (occurrence: None)
  Receive Date: 20051115
  Receipt Date: 20051102
  Transmission Date: 20060501
  Serious: Yes (Hospitalization)
  Sender: FDA-Public Use
  Company Number: 2005152618

PATIENT
  Age: 23 Year
  Sex: Female

DRUGS (4)
  1. DOXORUBICIN HCL [Suspect]
     Indication: LYMPHOMA
     Dosage: 50 MG/M2, INTRAVENOUS
     Route: 042
  2. CYCLOPHOSPHAMIDE [Suspect]
     Indication: LYMPHOMA
     Dosage: 750 MG/M2, INTRAVENOUS
     Route: 042
  3. VINCRISTINE [Suspect]
     Indication: LYMPHOMA
     Dosage: 1.4 MG/M2, INTRAVENOUS
     Route: 042
  4. PREDNISONE [Suspect]
     Indication: LYMPHOMA
     Dosage: 100 MG, ORAL
     Route: 048

REACTIONS (20)
  - ABDOMINAL PAIN [None]
  - DIARRHOEA [None]
  - HAEMATOCHEZIA [None]
  - HYPOCALCAEMIA [None]
  - HYPOKALAEMIA [None]
  - HYPONATRAEMIA [None]
  - ILEUS PARALYTIC [None]
  - INAPPROPRIATE SCHEDULE OF DRUG ADMINISTRATION [None]
  - NAUSEA [None]
  - NEUTROPENIA [None]
  - NUCLEAR MAGNETIC RESONANCE IMAGING BRAIN ABNORMAL [None]
  - ORAL SOFT TISSUE DISORDER [None]
  - OVERDOSE [None]
  - PANCYTOPENIA [None]
  - PURPURA [None]
  - PYREXIA [None]
  - QUADRIPARESIS [None]
  - URINARY INCONTINENCE [None]
  - VISION BLURRED [None]
  - VOMITING [None]
